FAERS Safety Report 7985721-6 (Version None)
Quarter: 2011Q4

REPORT INFORMATION
  Report Type: 
  Country: None (occurrence: None)
  Receive Date: 20111216
  Receipt Date: 20111216
  Transmission Date: 20120403
  Serious: Yes (Life-Threatening, Hospitalization)
  Sender: FDA-Public Use
  Company Number: None

PATIENT
  Age: 23 Year
  Sex: Female
  Weight: 104.32 kg

DRUGS (1)
  1. LAMICTAL [Suspect]
     Indication: GRAND MAL CONVULSION
     Dosage: 200MG

REACTIONS (7)
  - STATUS EPILEPTICUS [None]
  - SPEECH DISORDER [None]
  - GRAND MAL CONVULSION [None]
  - PRODUCT QUALITY ISSUE [None]
  - CONFUSIONAL STATE [None]
  - COGNITIVE DISORDER [None]
  - RESPIRATORY ARREST [None]
